FAERS Safety Report 23710174 (Version 1)
Quarter: 2024Q2

REPORT INFORMATION
  Report Type: Spontaneous
  Country: US (occurrence: US)
  Receive Date: 20240405
  Receipt Date: 20240405
  Transmission Date: 20240715
  Serious: No
  Sender: FDA-Public Use
  Company Number: US-AYTU BIOPHARMA, INC.-2023AYT000012

PATIENT

DRUGS (1)
  1. ADZENYS XR-ODT [Suspect]
     Active Substance: AMPHETAMINE
     Indication: Product used for unknown indication
     Dosage: 6.3 MILLIGRAM

REACTIONS (1)
  - Blood elastase decreased [Unknown]

NARRATIVE: CASE EVENT DATE: 20220801
